FAERS Safety Report 8542051-1 (Version None)
Quarter: 2012Q3

REPORT INFORMATION
  Report Type: 
  Country: None (occurrence: None)
  Receive Date: 20120726
  Receipt Date: 20110929
  Transmission Date: 20120928
  Serious: No
  Sender: FDA-Public Use
  Company Number: US-ASTRAZENECA-2011SE58652

PATIENT
  Age: 29 Year
  Sex: Female
  Weight: 79.4 kg

DRUGS (4)
  1. SEROQUEL XR [Suspect]
     Indication: DEPRESSION
     Route: 048
     Dates: start: 20110201
  2. CLONIDINE [Concomitant]
     Indication: ANXIETY
  3. VYVANSE [Concomitant]
     Indication: ATTENTION DEFICIT/HYPERACTIVITY DISORDER
  4. IRON OTC [Concomitant]
     Indication: ANAEMIA

REACTIONS (4)
  - FEELING ABNORMAL [None]
  - DRUG DOSE OMISSION [None]
  - ATTENTION DEFICIT/HYPERACTIVITY DISORDER [None]
  - INSOMNIA [None]
